FAERS Safety Report 19075013 (Version 1)
Quarter: 2021Q1

REPORT INFORMATION
  Report Type: Spontaneous
  Country: US (occurrence: US)
  Receive Date: 20210330
  Receipt Date: 20210330
  Transmission Date: 20210420
  Serious: No
  Sender: FDA-Public Use
  Company Number: US-ROCHE-2704845

PATIENT
  Age: 73 Year
  Sex: Male
  Weight: 81.27 kg

DRUGS (1)
  1. ERIVEDGE [Suspect]
     Active Substance: VISMODEGIB
     Indication: BASAL CELL CARCINOMA
     Route: 048
     Dates: start: 202006

REACTIONS (2)
  - Alopecia [Unknown]
  - Nausea [Recovered/Resolved]

NARRATIVE: CASE EVENT DATE: 202006
